FAERS Safety Report 15658067 (Version 1)
Quarter: 2018Q4

REPORT INFORMATION
  Report Type: Spontaneous
  Country: FR (occurrence: FR)
  Receive Date: 20181126
  Receipt Date: 20181126
  Transmission Date: 20190205
  Serious: Yes (Other)
  Sender: FDA-Public Use
  Company Number: PHHY2018FR164076

PATIENT
  Age: 10 Year
  Sex: Male
  Weight: 43 kg

DRUGS (2)
  1. SABRIL [Concomitant]
     Active Substance: VIGABATRIN
     Indication: PARTIAL SEIZURES
     Dosage: 1000 MG, QD
     Route: 048
  2. TEGRETOL [Suspect]
     Active Substance: CARBAMAZEPINE
     Indication: PARTIAL SEIZURES
     Dosage: 1600 MG, QD
     Route: 048
     Dates: start: 20181003, end: 20181029

REACTIONS (8)
  - Somnolence [Recovered/Resolved]
  - Incorrect dose administered [Recovered/Resolved]
  - Vomiting [Recovered/Resolved]
  - Product administration error [Recovered/Resolved]
  - Overdose [Recovered/Resolved]
  - Vision blurred [Recovered/Resolved]
  - Vertigo [Recovered/Resolved]
  - Medication error [Recovered/Resolved]

NARRATIVE: CASE EVENT DATE: 201810
